FAERS Safety Report 7106774-3 (Version None)
Quarter: 2010Q4

REPORT INFORMATION
  Report Type: 
  Country: None (occurrence: None)
  Receive Date: 20101116
  Receipt Date: 20101108
  Transmission Date: 20110411
  Serious: Yes (Hospitalization, Other)
  Sender: FDA-Public Use
  Company Number: US-MERCK-1007USA00519

PATIENT
  Age: 42 Year
  Sex: Female

DRUGS (4)
  1. FOSAMAX [Suspect]
     Indication: OSTEOPOROSIS
     Route: 048
     Dates: start: 20060523, end: 20080825
  2. LEXAPRO [Concomitant]
     Route: 065
     Dates: start: 20050101
  3. SEROQUEL [Concomitant]
     Route: 065
     Dates: start: 20050101
  4. ALENDRONATE SODIUM [Suspect]
     Route: 065

REACTIONS (55)
  - ABSCESS [None]
  - ABSCESS ORAL [None]
  - ACNE [None]
  - ACUTE SINUSITIS [None]
  - BACTERIAL TEST POSITIVE [None]
  - BONE EROSION [None]
  - BONE GRAFT [None]
  - CARBUNCLE [None]
  - CATHETER SITE ERYTHEMA [None]
  - CELLULITIS [None]
  - CHEILITIS [None]
  - CHRONIC OBSTRUCTIVE PULMONARY DISEASE [None]
  - CHRONIC SINUSITIS [None]
  - CROHN'S DISEASE [None]
  - CYST [None]
  - DENTAL CARIES [None]
  - DEPRESSION [None]
  - DERMAL CYST [None]
  - ESCHERICHIA TEST POSITIVE [None]
  - EUSTACHIAN TUBE DYSFUNCTION [None]
  - FISTULA DISCHARGE [None]
  - FUNGAL TEST POSITIVE [None]
  - FURUNCLE [None]
  - HEARING IMPAIRED [None]
  - HYPERLIPIDAEMIA [None]
  - HYPOAESTHESIA [None]
  - HYPOALBUMINAEMIA [None]
  - HYPOCALCAEMIA [None]
  - HYPOMAGNESAEMIA [None]
  - IMPAIRED HEALING [None]
  - INCISION SITE ERYTHEMA [None]
  - INCISION SITE HAEMORRHAGE [None]
  - INFLAMMATORY BOWEL DISEASE [None]
  - INFUSION SITE ERYTHEMA [None]
  - JAW DISORDER [None]
  - JOINT RANGE OF MOTION DECREASED [None]
  - MYELITIS TRANSVERSE [None]
  - MYRINGITIS [None]
  - OEDEMA MOUTH [None]
  - ORAL CAVITY FISTULA [None]
  - ORAL INFECTION [None]
  - OSTEOMYELITIS [None]
  - OSTEONECROSIS OF JAW [None]
  - OTITIS EXTERNA [None]
  - PARAESTHESIA [None]
  - PERINEAL CYST [None]
  - PERIORBITAL HAEMATOMA [None]
  - PHYSICAL ASSAULT [None]
  - PURULENT DISCHARGE [None]
  - SCAR [None]
  - SKIN FIBROSIS [None]
  - SKIN INFECTION [None]
  - SOFT TISSUE INFECTION [None]
  - STOMATITIS [None]
  - TOOTH LOSS [None]
